FAERS Safety Report 10016728 (Version 11)
Quarter: 2014Q3

REPORT INFORMATION
  Report Type: Report from Study
  Country: CA (occurrence: CA)
  Receive Date: 20140318
  Receipt Date: 20140919
  Transmission Date: 20150326
  Serious: Yes (Hospitalization, Other)
  Sender: FDA-Public Use
  Company Number: PHHY2013CA127574

PATIENT
  Age: 39 Year
  Sex: Female

DRUGS (3)
  1. ZOMETA [Suspect]
     Active Substance: ZOLEDRONIC ACID
     Indication: NON-SMALL CELL LUNG CANCER METASTATIC
  2. CHEMOTHERAPEUTICS [Suspect]
     Active Substance: UNSPECIFIED INGREDIENT
     Dosage: UNK UKN, UNK
  3. ZOMETA [Suspect]
     Active Substance: ZOLEDRONIC ACID
     Indication: LUNG NEOPLASM MALIGNANT
     Dosage: 4 MG, EVERY 4 WEEKS
     Route: 042
     Dates: start: 20131106, end: 20140703

REACTIONS (18)
  - Influenza like illness [Unknown]
  - Oropharyngeal pain [Unknown]
  - Pneumonia [Recovered/Resolved]
  - Gingival ulceration [Unknown]
  - Urticaria [Recovering/Resolving]
  - Influenza [Unknown]
  - Pyrexia [Unknown]
  - Ear pain [Unknown]
  - Oral pain [Recovered/Resolved]
  - Blood pressure systolic increased [Recovering/Resolving]
  - Malaise [Unknown]
  - Rash [Recovering/Resolving]
  - Pain [Recovered/Resolved]
  - Myalgia [Unknown]
  - Gingival pain [Unknown]
  - Hypotension [Recovering/Resolving]
  - Fatigue [Unknown]
  - Parainfluenzae virus infection [Unknown]

NARRATIVE: CASE EVENT DATE: 20131107
